FAERS Safety Report 7295124-8 (Version None)
Quarter: 2011Q1

REPORT INFORMATION
  Report Type: 
  Country: None (occurrence: None)
  Receive Date: 20110216
  Receipt Date: 20110207
  Transmission Date: 20110831
  Serious: Yes (Other)
  Sender: FDA-Public Use
  Company Number: JP-JNJFOC-20110201964

PATIENT
  Age: 79 Year
  Sex: Male

DRUGS (13)
  1. CRAVIT [Suspect]
     Indication: URINARY TRACT INFECTION
     Route: 048
  2. ASPIRIN [Concomitant]
     Indication: ATRIAL FIBRILLATION
     Route: 048
  3. HERBESSER R [Concomitant]
     Indication: HYPERTENSION
  4. ARICEPT [Concomitant]
     Indication: DEMENTIA ALZHEIMER'S TYPE
     Route: 048
  5. AMARYL [Suspect]
     Indication: PRODUCT USED FOR UNKNOWN INDICATION
     Route: 065
  6. LULLAN [Concomitant]
     Route: 065
  7. WARFARIN SODIUM [Concomitant]
     Indication: ATRIAL FIBRILLATION
     Route: 048
  8. OLMETEC [Concomitant]
     Indication: HYPERTENSION
  9. ITOROL [Concomitant]
     Indication: ANGINA PECTORIS
  10. PROCYLIN [Concomitant]
     Indication: ARTERIAL OCCLUSIVE DISEASE
  11. TAKEPRON [Concomitant]
     Indication: REFLUX OESOPHAGITIS
  12. LIVALO [Concomitant]
     Indication: DYSLIPIDAEMIA
  13. SELBEX [Concomitant]
     Indication: GASTRITIS

REACTIONS (2)
  - HYPOGLYCAEMIA [None]
  - ALTERED STATE OF CONSCIOUSNESS [None]
